FAERS Safety Report 10149619 (Version 2)
Quarter: 2014Q2

REPORT INFORMATION
  Report Type: Spontaneous
  Country: US (occurrence: US)
  Receive Date: 20140502
  Receipt Date: 20140623
  Transmission Date: 20141212
  Serious: No
  Sender: FDA-Public Use
  Company Number: US-PFIZER INC-2014119059

PATIENT
  Age: 78 Year
  Sex: Female

DRUGS (1)
  1. DETROL LA [Suspect]
     Dosage: 4 MG, 1X/DAY
     Route: 048
     Dates: end: 20130903

REACTIONS (2)
  - Residual urine volume increased [Recovered/Resolved]
  - Drug hypersensitivity [Unknown]
